FAERS Safety Report 10692001 (Version 1)
Quarter: 2015Q1

REPORT INFORMATION
  Report Type: Report from Study
  Country: IE (occurrence: IE)
  Receive Date: 20150106
  Receipt Date: 20150106
  Transmission Date: 20150720
  Serious: Yes (Death)
  Sender: FDA-Public Use
  Company Number: IE-AMGEN-IRLSL2015000056

PATIENT
  Age: 62 Year
  Sex: Female

DRUGS (6)
  1. ZOFRAN                             /00955301/ [Concomitant]
     Active Substance: ONDANSETRON HYDROCHLORIDE
  2. PARACETAMOL [Concomitant]
     Active Substance: ACETAMINOPHEN
  3. ARANESP [Suspect]
     Active Substance: DARBEPOETIN ALFA
     Indication: LUNG NEOPLASM MALIGNANT
     Dosage: 500 MUG, EVERY OTHER WEEK
     Route: 058
     Dates: start: 20141028
  4. XANAX [Concomitant]
     Active Substance: ALPRAZOLAM
  5. LEXAPRO [Concomitant]
     Active Substance: ESCITALOPRAM OXALATE
  6. TRAMADOL [Concomitant]
     Active Substance: TRAMADOL

REACTIONS (1)
  - Death [Fatal]

NARRATIVE: CASE EVENT DATE: 20141219
